FAERS Safety Report 7309382-4 (Version None)
Quarter: 2011Q1

REPORT INFORMATION
  Report Type: 
  Country: None (occurrence: None)
  Receive Date: 20110223
  Receipt Date: 20110214
  Transmission Date: 20110831
  Serious: Yes (Hospitalization)
  Sender: FDA-Public Use
  Company Number: GB-ASTRAZENECA-2011SE08504

PATIENT
  Age: 72 Year
  Sex: Male

DRUGS (15)
  1. NEXIUM [Suspect]
     Route: 048
  2. PAZOLE [Concomitant]
  3. LORACET [Concomitant]
  4. CARAFATE [Concomitant]
  5. VITAMIN B-12 [Concomitant]
     Dosage: 1.25/50000IU BIWK
  6. ATARAX [Concomitant]
  7. OXYCODONE [Concomitant]
  8. EFFEXOR [Concomitant]
  9. LOVASTATIN [Concomitant]
     Indication: HYPERCHOLESTEROLAEMIA
  10. NEXIUM [Suspect]
     Route: 048
  11. PROMETHAZINE [Concomitant]
  12. MAXZIDE [Concomitant]
  13. REGLAN [Concomitant]
  14. VALIUM [Concomitant]
  15. TRAZODONE HCL [Concomitant]

REACTIONS (1)
  - CEREBROVASCULAR ACCIDENT [None]
